FAERS Safety Report 23794122 (Version 1)
Quarter: 2024Q2

REPORT INFORMATION
  Report Type: Spontaneous
  Country: US (occurrence: None)
  Receive Date: 20240429
  Receipt Date: 20240429
  Transmission Date: 20240716
  Serious: No
  Sender: FDA-Public Use
  Company Number: 2024A099007

PATIENT
  Sex: Male

DRUGS (1)
  1. BREZTRI [Suspect]
     Active Substance: BUDESONIDE\FORMOTEROL\GLYCOPYRROLATE
     Route: 055

REACTIONS (6)
  - Vision blurred [Unknown]
  - Halo vision [Unknown]
  - Ocular hyperaemia [Unknown]
  - Dysuria [Not Recovered/Not Resolved]
  - Back pain [Unknown]
  - Product use in unapproved indication [Unknown]
